FAERS Safety Report 8451295-9 (Version None)
Quarter: 2012Q2

REPORT INFORMATION
  Report Type: 
  Country: None (occurrence: None)
  Receive Date: 20120620
  Receipt Date: 20120312
  Transmission Date: 20120825
  Serious: No
  Sender: FDA-Public Use
  Company Number: US-VERTEX PHARMACEUTICALS INC.-AE-2012-002378

PATIENT
  Sex: Male
  Weight: 72.64 kg

DRUGS (4)
  1. HIV MEDICATION [Concomitant]
     Indication: HIV INFECTION
  2. RIBAVIRIN [Concomitant]
     Indication: HEPATITIS C
     Dates: start: 20120201
  3. INCIVEK [Suspect]
     Indication: HEPATITIS C
     Route: 048
     Dates: start: 20120201
  4. PEGASYS [Concomitant]
     Indication: HEPATITIS C
     Dates: start: 20120201

REACTIONS (11)
  - DIARRHOEA [None]
  - DECREASED APPETITE [None]
  - DIZZINESS [None]
  - GASTROOESOPHAGEAL REFLUX DISEASE [None]
  - ABDOMINAL PAIN UPPER [None]
  - DYSPHAGIA [None]
  - DRY SKIN [None]
  - WEIGHT DECREASED [None]
  - STOMATITIS [None]
  - OFF LABEL USE [None]
  - NAUSEA [None]
